FAERS Safety Report 5133397-8 (Version None)
Quarter: 2006Q4

REPORT INFORMATION
  Report Type: 
  Country: None (occurrence: None)
  Receive Date: 20061024
  Receipt Date: 20060605
  Transmission Date: 20070319
  Serious: Yes (Other)
  Sender: FDA-Public Use
  Company Number: US-BAYER-200612373BCC

PATIENT
  Age: 69 Year
  Sex: Female
  Weight: 73 kg

DRUGS (6)
  1. ASPIRIN TAB [Suspect]
     Indication: CEREBROVASCULAR ACCIDENT
     Dosage: AS USED: 81 MG  UNIT DOSE: 81 MG
     Route: 048
     Dates: start: 20050601
  2. FLINTSTONES COMPLETE [Suspect]
     Indication: CEREBROVASCULAR ACCIDENT PROPHYLAXIS
     Route: 048
  3. MAGNESIUM SUPPLEMENT [Concomitant]
  4. NORVASC [Concomitant]
  5. PREMARIN [Concomitant]
  6. CLARINEX [Concomitant]

REACTIONS (5)
  - CEREBRAL CYST [None]
  - DYSKINESIA [None]
  - FLUSHING [None]
  - HEART RATE INCREASED [None]
  - VERTIGO POSITIONAL [None]
